FAERS Safety Report 22398996 (Version 2)
Quarter: 2023Q2

REPORT INFORMATION
  Report Type: Spontaneous
  Country: FR (occurrence: FR)
  Receive Date: 20230602
  Receipt Date: 20230613
  Transmission Date: 20230722
  Serious: Yes (Hospitalization, Other)
  Sender: FDA-Public Use
  Company Number: FR-CELGENE-FRA-2017027057

PATIENT
  Age: 17 Year
  Sex: Female

DRUGS (15)
  1. THALIDOMIDE [Suspect]
     Active Substance: THALIDOMIDE
     Indication: Chronic cutaneous lupus erythematosus
     Route: 048
     Dates: start: 20160613, end: 20161127
  2. THALIDOMIDE [Suspect]
     Active Substance: THALIDOMIDE
     Dosage: 1.5 TABLET PER DAY IN THE EVENING DURING 1 MONTH THEN 1 TABLET IN THE EVENING TWICE A WEEK.
  3. THALIDOMIDE [Suspect]
     Active Substance: THALIDOMIDE
     Dosage: 1.5 TABLET PER DAY IN THE EVENING DURING 1 MONTH THEN 1 TABLET IN THE EVENING TWICE A WEEK.
  4. THALIDOMIDE [Suspect]
     Active Substance: THALIDOMIDE
  5. THALIDOMIDE [Suspect]
     Active Substance: THALIDOMIDE
  6. PLAQUENIL [Suspect]
     Active Substance: HYDROXYCHLOROQUINE SULFATE
     Indication: Chronic cutaneous lupus erythematosus
     Dosage: 2 DOSAGE FORMS?45 TABLETS?2 TABS/D
     Route: 048
     Dates: start: 201512, end: 20161127
  7. PLAQUENIL [Suspect]
     Active Substance: HYDROXYCHLOROQUINE SULFATE
  8. ALPRAZOLAM [Suspect]
     Active Substance: ALPRAZOLAM
     Indication: Product used for unknown indication
     Dosage: .5 DOSAGE FORMS?30 TABLETS
     Dates: start: 201611
  9. ASPIRIN [Concomitant]
     Active Substance: ASPIRIN
     Indication: Product used for unknown indication
  10. DESOGESTREL [Concomitant]
     Active Substance: DESOGESTREL
     Indication: Product used for unknown indication
     Dosage: 1 TABLET TO BE STARTED ON THE FIRST DAY OF PERIOD AND TO BE CONTINUED 28 DAYS ON 28 DAYS
  11. NIFEDIPINE [Concomitant]
     Active Substance: NIFEDIPINE
     Indication: Product used for unknown indication
     Dosage: 30 MG PER DAY, TABLET, IF CHILBLAINS SUFFICIENT QUANTITY FOR 6 MONTHS
  12. CHLORMADINONE ACETATE [Concomitant]
     Active Substance: CHLORMADINONE ACETATE
     Indication: Product used for unknown indication
  13. ASPIRIN DL-LYSINE [Concomitant]
     Active Substance: ASPIRIN DL-LYSINE
     Indication: Product used for unknown indication
     Dosage: 1 BAG
  14. CHOLECALCIFEROL [Concomitant]
     Active Substance: CHOLECALCIFEROL
     Indication: Product used for unknown indication
     Dosage: 1 AMPOULE EVERY 15 DAYS DURING 2 MONTHS THEN 1 AMPOULE PER MONTH
  15. UNSPECIFIED INGREDIENT [Concomitant]
     Active Substance: UNSPECIFIED INGREDIENT
     Indication: Product used for unknown indication
     Dosage: AN ORAL CONTRACEPTIVE HAS BEEN PRESCRIBED BUT HITHERTO NOT TAKEN

REACTIONS (9)
  - Suicide attempt [Recovered/Resolved]
  - Weight decreased [Recovered/Resolved]
  - Arthralgia [Not Recovered/Not Resolved]
  - Depression [Recovering/Resolving]
  - Off label use [Unknown]
  - Back pain [Unknown]
  - Vitamin D deficiency [Unknown]
  - Iron deficiency [Unknown]
  - Delusion [Unknown]

NARRATIVE: CASE EVENT DATE: 20161101
